FAERS Safety Report 17909601 (Version 1)
Quarter: 2020Q2

REPORT INFORMATION
  Report Type: Spontaneous
  Country: AR (occurrence: AR)
  Receive Date: 20200617
  Receipt Date: 20200617
  Transmission Date: 20200714
  Serious: Yes (Other)
  Sender: FDA-Public Use
  Company Number: NVSC2020AR153503

PATIENT
  Sex: Female

DRUGS (6)
  1. GLIVEC [Suspect]
     Active Substance: IMATINIB MESYLATE
     Indication: CHRONIC MYELOID LEUKAEMIA
     Dosage: 400 MG, QD
     Route: 065
     Dates: start: 20060308
  2. GLIVEC [Suspect]
     Active Substance: IMATINIB MESYLATE
     Dosage: 400 MG, QD
     Route: 065
     Dates: start: 2006, end: 2007
  3. LEVOTHYROXINE. [Concomitant]
     Active Substance: LEVOTHYROXINE
     Indication: PRODUCT USED FOR UNKNOWN INDICATION
     Dosage: 75 MG, QD
     Route: 065
     Dates: start: 1993
  4. GLIVEC [Suspect]
     Active Substance: IMATINIB MESYLATE
     Dosage: 600 MG, QD
     Route: 065
     Dates: start: 2007, end: 201612
  5. GLIVEC [Suspect]
     Active Substance: IMATINIB MESYLATE
     Dosage: 200 MG, QD
     Route: 065
     Dates: start: 200611
  6. GLIVEC [Suspect]
     Active Substance: IMATINIB MESYLATE
     Dosage: 400 MG, QD
     Route: 065
     Dates: end: 201607

REACTIONS (19)
  - Gastrointestinal disorder [Unknown]
  - Hypersensitivity [Unknown]
  - Scoliosis [Unknown]
  - Dry eye [Unknown]
  - Myalgia [Recovering/Resolving]
  - Urticaria [Unknown]
  - Pain [Recovering/Resolving]
  - Muscle spasms [Recovering/Resolving]
  - Sciatica [Unknown]
  - Hepatotoxicity [Recovered/Resolved]
  - Transaminases increased [Unknown]
  - Osteoarthritis [Unknown]
  - Intervertebral disc protrusion [Unknown]
  - Swelling [Recovering/Resolving]
  - Oedematous kidney [Recovering/Resolving]
  - Bronchial hyperreactivity [Unknown]
  - Spinal pain [Not Recovered/Not Resolved]
  - Malaise [Unknown]
  - Chronic myeloid leukaemia (in remission) [Unknown]

NARRATIVE: CASE EVENT DATE: 2006
